FAERS Safety Report 15094415 (Version 2)
Quarter: 2018Q3

REPORT INFORMATION
  Report Type: Spontaneous
  Country: IT (occurrence: IT)
  Receive Date: 20180630
  Receipt Date: 20180821
  Transmission Date: 20181010
  Serious: Yes (Other)
  Sender: FDA-Public Use
  Company Number: IT-AUROBINDO-AUR-APL-2018-032925

PATIENT
  Age: 44 Year
  Sex: Male

DRUGS (2)
  1. AULIN [Suspect]
     Active Substance: NIMESULIDE
     Indication: TOOTHACHE
     Dosage: 1 DF, TOTAL
     Route: 048
     Dates: start: 20180424, end: 20180424
  2. AMOXICILLIN. [Suspect]
     Active Substance: AMOXICILLIN
     Indication: DENTAL OPERATION
     Dosage: 2 DOSAGE FORM, ONCE A DAY,(2 DF, QD)
     Route: 048
     Dates: start: 20180421, end: 20180424

REACTIONS (3)
  - Erythema [Recovering/Resolving]
  - Throat tightness [Recovering/Resolving]
  - Urticaria [Recovering/Resolving]

NARRATIVE: CASE EVENT DATE: 20180424
